FAERS Safety Report 6669529-X (Version None)
Quarter: 2010Q2

REPORT INFORMATION
  Report Type: 
  Country: None (occurrence: None)
  Receive Date: 20100406
  Receipt Date: 20100402
  Transmission Date: 20101027
  Serious: Yes (Other)
  Sender: FDA-Public Use
  Company Number: FR-ROXANE LABORATORIES, INC.-2010-RO-00369RO

PATIENT
  Age: 37 Year
  Sex: Female

DRUGS (5)
  1. DIAZEPAM [Suspect]
  2. RISPERIDONE [Suspect]
     Indication: SCHIZOPHRENIA, PARANOID TYPE
     Dosage: 6 MG
  3. RISPERIDONE [Suspect]
     Dosage: 4 MG
  4. ARIPIPRAZOLE [Suspect]
     Indication: SCHIZOPHRENIA, PARANOID TYPE
     Dosage: 10 MG
  5. ARIPIPRAZOLE [Suspect]
     Dosage: 5 MG

REACTIONS (2)
  - AKATHISIA [None]
  - PARKINSONISM [None]
